FAERS Safety Report 11879262 (Version 1)
Quarter: 2015Q4

REPORT INFORMATION
  Report Type: Spontaneous
  Country: PE (occurrence: PE)
  Receive Date: 20151230
  Receipt Date: 20151230
  Transmission Date: 20160305
  Serious: Yes (Death)
  Sender: FDA-Public Use
  Company Number: PE-TEVA-621421ISR

PATIENT
  Age: 75 Year
  Sex: Female

DRUGS (5)
  1. CARBIDOPA - LEVODOPA [Concomitant]
     Indication: PARKINSON^S DISEASE
     Dosage: THERAY STARTED 8 YEARS AGO
     Route: 048
     Dates: start: 2007, end: 201511
  2. QUETIAPINE [Concomitant]
     Active Substance: QUETIAPINE
     Indication: PSYCHOTIC DISORDER
     Route: 048
     Dates: start: 201508, end: 201511
  3. AZILECT [Suspect]
     Active Substance: RASAGILINE MESYLATE
     Indication: PARKINSON^S DISEASE
     Dosage: 1 MILLIGRAM DAILY;
     Route: 048
     Dates: start: 201508, end: 201511
  4. CLONAZEPAM. [Concomitant]
     Active Substance: CLONAZEPAM
     Indication: ANXIOLYTIC THERAPY
     Route: 048
     Dates: start: 201508, end: 201511
  5. PRAMIPEXOLE. [Concomitant]
     Active Substance: PRAMIPEXOLE
     Indication: PARKINSON^S DISEASE
     Dosage: THERAPY STARTED 8 YEARS AGO
     Route: 048
     Dates: start: 2007, end: 201511

REACTIONS (4)
  - Dry mouth [Unknown]
  - Weight decreased [Unknown]
  - Cardiac arrest [Fatal]
  - Dysphagia [Unknown]

NARRATIVE: CASE EVENT DATE: 201511
